FAERS Safety Report 8394745-9 (Version None)
Quarter: 2012Q2

REPORT INFORMATION
  Report Type: 
  Country: None (occurrence: None)
  Receive Date: 20120525
  Receipt Date: 20120525
  Transmission Date: 20120825
  Serious: Yes (Disabling)
  Sender: FDA-Public Use
  Company Number: None

PATIENT
  Sex: Male
  Weight: 98.8842 kg

DRUGS (3)
  1. TRAZODONE HCL [Suspect]
     Indication: DEPRESSION
     Dosage: 200MG Q HS PO APPROX. 3-4 YEARS
     Route: 048
  2. TRAZODONE HCL [Suspect]
     Indication: INSOMNIA
     Dosage: 200MG Q HS PO APPROX. 3-4 YEARS
     Route: 048
  3. TRAZODONE HCL [Suspect]
     Dosage: 100MG Q HS PO
     Route: 048

REACTIONS (12)
  - DRUG WITHDRAWAL SYNDROME [None]
  - CONSTIPATION [None]
  - WEIGHT DECREASED [None]
  - GASTROOESOPHAGEAL REFLUX DISEASE [None]
  - PYLORIC STENOSIS [None]
  - ANXIETY [None]
  - GASTROINTESTINAL PAIN [None]
  - NAUSEA [None]
  - VOMITING [None]
  - PSYCHOTIC DISORDER [None]
  - INSOMNIA [None]
  - AUTOIMMUNE DISORDER [None]
